FAERS Safety Report 7364216-7 (Version None)
Quarter: 2011Q1

REPORT INFORMATION
  Report Type: 
  Country: None (occurrence: None)
  Receive Date: 20110316
  Receipt Date: 20110316
  Transmission Date: 20110831
  Serious: Yes (Other)
  Sender: FDA-Public Use
  Company Number: None

PATIENT
  Age: 84 Year
  Sex: Male
  Weight: 72.5755 kg

DRUGS (3)
  1. ATROPINE [Concomitant]
  2. CELLCEPT [Suspect]
     Indication: DERMATITIS ALLERGIC
     Dosage: 500 MG TWICE A DAY
     Dates: start: 20100810, end: 20101103
  3. PYRIDOSTIGMINE BROMIDE [Concomitant]

REACTIONS (4)
  - PRODUCT QUALITY ISSUE [None]
  - RASH [None]
  - PRURITUS [None]
  - NONSPECIFIC REACTION [None]
